FAERS Safety Report 5222430-0 (Version None)
Quarter: 2007Q1

REPORT INFORMATION
  Report Type: 
  Country: None (occurrence: None)
  Receive Date: 20070129
  Receipt Date: 20070119
  Transmission Date: 20070707
  Serious: Yes (Hospitalization)
  Sender: FDA-Public Use
  Company Number: PHHO2007AR01752

PATIENT
  Age: 46 Year
  Sex: Female

DRUGS (1)
  1. ZELMAC / HTF 919A [Suspect]
     Dosage: BID
     Dates: end: 20061126

REACTIONS (2)
  - COLON CANCER [None]
  - SURGERY [None]
